FAERS Safety Report 7142212-2 (Version None)
Quarter: 2010Q4

REPORT INFORMATION
  Report Type: 
  Country: None (occurrence: None)
  Receive Date: 20101207
  Receipt Date: 20101201
  Transmission Date: 20110411
  Serious: Yes (Other)
  Sender: FDA-Public Use
  Company Number: JP-PFIZER INC-2010161008

PATIENT
  Age: 55 Year
  Sex: Male

DRUGS (3)
  1. HYDROXYZINE HCL [Suspect]
     Indication: NAUSEA
  2. HALOPERIDOL [Suspect]
     Indication: NAUSEA
  3. METOCLOPRAMIDE [Suspect]
     Indication: NAUSEA

REACTIONS (3)
  - DELIRIUM [None]
  - DRUG EFFECT DECREASED [None]
  - EXTRAPYRAMIDAL DISORDER [None]
